FAERS Safety Report 9833516 (Version 40)
Quarter: 2017Q3

REPORT INFORMATION
  Report Type: Report from Study
  Country: CA (occurrence: CA)
  Receive Date: 20140122
  Receipt Date: 20170923
  Transmission Date: 20171128
  Serious: Yes (Hospitalization, Other)
  Sender: FDA-Public Use
  Company Number: CA-ROCHE-1288336

PATIENT
  Age: 73 Year
  Sex: Female
  Weight: 45 kg

DRUGS (9)
  1. ACTEMRA [Suspect]
     Active Substance: TOCILIZUMAB
     Route: 042
     Dates: start: 20140714
  2. ACTEMRA [Suspect]
     Active Substance: TOCILIZUMAB
     Route: 042
     Dates: start: 20150428
  3. ACTEMRA [Suspect]
     Active Substance: TOCILIZUMAB
     Route: 042
     Dates: start: 20170725
  4. FUROSEMIDE. [Concomitant]
     Active Substance: FUROSEMIDE
  5. ARAVA [Concomitant]
     Active Substance: LEFLUNOMIDE
  6. PANTOLOC [Concomitant]
     Active Substance: PANTOPRAZOLE SODIUM
  7. DILTIAZEM. [Concomitant]
     Active Substance: DILTIAZEM
  8. ACTEMRA [Suspect]
     Active Substance: TOCILIZUMAB
     Indication: RHEUMATOID ARTHRITIS
     Dosage: LAST DOSE OF TOCIIZUMAB: FEB/2014
     Route: 042
     Dates: start: 20130919, end: 20170822
  9. PRADAXA [Concomitant]
     Active Substance: DABIGATRAN ETEXILATE MESYLATE

REACTIONS (45)
  - Gastroenteritis [Unknown]
  - Oxygen therapy [Not Recovered/Not Resolved]
  - Fatigue [Unknown]
  - Hypotension [Unknown]
  - Nasopharyngitis [Not Recovered/Not Resolved]
  - Blood pressure increased [Unknown]
  - Ear infection [Recovering/Resolving]
  - Hyperkeratosis [Unknown]
  - Limb injury [Unknown]
  - Lacrimation increased [Recovering/Resolving]
  - Swelling face [Unknown]
  - Fall [Unknown]
  - Underdose [Unknown]
  - Lung disorder [Unknown]
  - Dizziness [Not Recovered/Not Resolved]
  - Eye swelling [Recovering/Resolving]
  - Ear pain [Recovered/Resolved]
  - Arthralgia [Unknown]
  - Chest pain [Unknown]
  - Disability assessment scale score increased [Not Recovered/Not Resolved]
  - Treatment failure [Unknown]
  - Eye irritation [Unknown]
  - Impaired healing [Not Recovered/Not Resolved]
  - Onychoclasis [Unknown]
  - Mass [Not Recovered/Not Resolved]
  - Swelling face [Recovering/Resolving]
  - Mass [Recovered/Resolved]
  - Skin fissures [Not Recovered/Not Resolved]
  - Tachypnoea [Unknown]
  - Arrhythmia [Unknown]
  - Ocular hyperaemia [Recovered/Resolved]
  - Eye pruritus [Recovering/Resolving]
  - Skin depigmentation [Unknown]
  - Oxygen saturation decreased [Unknown]
  - Blood pressure increased [Unknown]
  - Dyspnoea [Unknown]
  - Oedema [Unknown]
  - Drug ineffective [Unknown]
  - Peripheral arterial occlusive disease [Unknown]
  - Ear disorder [Recovered/Resolved]
  - Oxygen saturation decreased [Unknown]
  - Paraesthesia [Not Recovered/Not Resolved]
  - Insomnia [Unknown]
  - Blood pressure systolic increased [Unknown]
  - Pruritus [Unknown]

NARRATIVE: CASE EVENT DATE: 20130919
